FAERS Safety Report 11651552 (Version 9)
Quarter: 2016Q4

REPORT INFORMATION
  Report Type: Report from Study
  Country: CA (occurrence: CA)
  Receive Date: 20151022
  Receipt Date: 20161104
  Transmission Date: 20170206
  Serious: Yes (Other)
  Sender: FDA-Public Use
  Company Number: CA-ROCHE-1649334

PATIENT
  Sex: Female

DRUGS (10)
  1. ACTEMRA [Suspect]
     Active Substance: TOCILIZUMAB
     Dosage: TILL NOW 4 INJECTIONS
     Route: 058
     Dates: end: 2016
  2. ZOPICLONE [Concomitant]
     Active Substance: ZOPICLONE
  3. PREDNISONE. [Concomitant]
     Active Substance: PREDNISONE
  4. MORPHINE [Concomitant]
     Active Substance: MORPHINE
  5. ACTEMRA [Suspect]
     Active Substance: TOCILIZUMAB
     Dosage: SUSPENDED
     Route: 042
     Dates: start: 20160718
  6. HYDROMORPHONE [Concomitant]
     Active Substance: HYDROMORPHONE
  7. ACTEMRA [Suspect]
     Active Substance: TOCILIZUMAB
     Indication: RHEUMATOID ARTHRITIS
     Route: 058
     Dates: start: 20160330
  8. ACTEMRA [Suspect]
     Active Substance: TOCILIZUMAB
     Indication: RHEUMATOID ARTHRITIS
     Dosage: FIRST DOSE THROUGH RPAP
     Route: 042
     Dates: start: 20151023, end: 20160226
  9. TECTA [Concomitant]
     Active Substance: PANTOPRAZOLE MAGNESIUM
  10. GABAPENTIN. [Concomitant]
     Active Substance: GABAPENTIN

REACTIONS (20)
  - Pigmentation disorder [Not Recovered/Not Resolved]
  - Micturition disorder [Not Recovered/Not Resolved]
  - Fatigue [Recovering/Resolving]
  - Eye contusion [Not Recovered/Not Resolved]
  - Urine output decreased [Not Recovered/Not Resolved]
  - Arthralgia [Unknown]
  - Facial bones fracture [Not Recovered/Not Resolved]
  - Migraine [Recovering/Resolving]
  - Micturition urgency [Not Recovered/Not Resolved]
  - Urine flow decreased [Not Recovered/Not Resolved]
  - Rheumatoid arthritis [Unknown]
  - Accident [Unknown]
  - Dizziness [Recovering/Resolving]
  - Joint swelling [Unknown]
  - Pain in extremity [Unknown]
  - Nasopharyngitis [Not Recovered/Not Resolved]
  - Peripheral swelling [Unknown]
  - Decreased appetite [Recovering/Resolving]
  - Dizziness [Not Recovered/Not Resolved]
  - Fall [Unknown]

NARRATIVE: CASE EVENT DATE: 2016
